FAERS Safety Report 9001878 (Version 1)
Quarter: 2013Q1

REPORT INFORMATION
  Report Type: Spontaneous
  Country: US (occurrence: US)
  Receive Date: 20130108
  Receipt Date: 20130108
  Transmission Date: 20140127
  Serious: Yes (Death, Other)
  Sender: FDA-Public Use
  Company Number: US-ELI_LILLY_AND_COMPANY-US201301000807

PATIENT
  Sex: 0

DRUGS (6)
  1. BYETTA [Suspect]
     Indication: TYPE 2 DIABETES MELLITUS
  2. BYDUREON [Suspect]
     Indication: TYPE 2 DIABETES MELLITUS
  3. JANUVIA [Concomitant]
     Indication: TYPE 2 DIABETES MELLITUS
  4. VICTOZA [Concomitant]
     Indication: TYPE 2 DIABETES MELLITUS
  5. LINAGLIPTIN [Concomitant]
     Indication: TYPE 2 DIABETES MELLITUS
  6. JANUMET [Concomitant]
     Indication: TYPE 2 DIABETES MELLITUS

REACTIONS (1)
  - Pancreatic carcinoma [Fatal]
